FAERS Safety Report 7362197-3 (Version None)
Quarter: 2011Q1

REPORT INFORMATION
  Report Type: 
  Country: None (occurrence: None)
  Receive Date: 20110309
  Receipt Date: 20110218
  Transmission Date: 20110831
  Serious: Yes (Other)
  Sender: FDA-Public Use
  Company Number: ES-022114

PATIENT

DRUGS (2)
  1. BUSULFAN [Suspect]
     Indication: PROPHYLAXIS AGAINST TRANSPLANT REJECTION
     Dosage: 16 MG/KG OVER 4 DAYS IN 6-HOURLY DIVIDED DOSES
     Route: 048
     Dates: end: 20060101
  2. MELPHALAN [Suspect]
     Indication: PROPHYLAXIS AGAINST TRANSPLANT REJECTION
     Dosage: 140 MG/M2 OVER 5 MN ON DAY-1
     Route: 041

REACTIONS (2)
  - ENGRAFTMENT SYNDROME [None]
  - TOXICITY TO VARIOUS AGENTS [None]
